FAERS Safety Report 18758810 (Version 3)
Quarter: 2021Q1

REPORT INFORMATION
  Report Type: Report from Study
  Country: JP (occurrence: JP)
  Receive Date: 20210119
  Receipt Date: 20210202
  Transmission Date: 20210419
  Serious: Yes (Death, Other)
  Sender: FDA-Public Use
  Company Number: JP-TAKEDA-2018MPI004757

PATIENT
  Age: 59 Year
  Sex: Female
  Weight: 45.5 kg

DRUGS (24)
  1. DEXAMETHASONE. [Concomitant]
     Active Substance: DEXAMETHASONE
     Indication: PLASMA CELL MYELOMA
     Dosage: 20 MILLIGRAM, QD
     Route: 065
     Dates: start: 20171129, end: 20171130
  2. DEXAMETHASONE. [Concomitant]
     Active Substance: DEXAMETHASONE
     Dosage: 20 MILLIGRAM, QD
     Route: 065
     Dates: start: 20171202, end: 20171203
  3. THALED [Concomitant]
     Active Substance: THALIDOMIDE
     Dosage: 50 MILLIGRAM, QD
     Route: 048
     Dates: start: 20171223, end: 20171223
  4. THALED [Concomitant]
     Active Substance: THALIDOMIDE
     Dosage: 50 MILLIGRAM, QD
     Route: 048
     Dates: start: 20180106, end: 20180106
  5. BORTEZOMIB. [Suspect]
     Active Substance: BORTEZOMIB
     Dosage: 1.3 MILLIGRAM/SQ. METER, QD
     Route: 065
     Dates: start: 20171202, end: 20171202
  6. BORTEZOMIB. [Suspect]
     Active Substance: BORTEZOMIB
     Dosage: 1.3 MILLIGRAM/SQ. METER, QD
     Route: 065
     Dates: start: 20171206, end: 20171206
  7. BORTEZOMIB. [Suspect]
     Active Substance: BORTEZOMIB
     Dosage: 1.3 MILLIGRAM/SQ. METER, QD
     Route: 065
     Dates: start: 20171209, end: 20171209
  8. DARZALEX [Suspect]
     Active Substance: DARATUMUMAB
     Indication: PLASMA CELL MYELOMA
     Dosage: 16 MILLIGRAM/KILOGRAM, QD
     Route: 041
     Dates: start: 20171129
  9. DARZALEX [Suspect]
     Active Substance: DARATUMUMAB
     Dosage: 16 MILLIGRAM/KILOGRAM, QD
     Route: 041
     Dates: start: 20171213
  10. DEXAMETHASONE. [Concomitant]
     Active Substance: DEXAMETHASONE
     Dosage: 20 MILLIGRAM, QD
     Route: 065
     Dates: start: 20171206, end: 20171207
  11. RANDA [Concomitant]
     Active Substance: CISPLATIN
     Indication: PLASMA CELL MYELOMA
     Dosage: 13 MILLIGRAM, QD
     Route: 065
     Dates: start: 20171219, end: 20171222
  12. ENDOXAN [CYCLOPHOSPHAMIDE] [Concomitant]
     Active Substance: CYCLOPHOSPHAMIDE
     Indication: PLASMA CELL MYELOMA
     Dosage: 530 MILLIGRAM, QD
     Route: 048
     Dates: start: 20171219, end: 20171222
  13. THALED [Concomitant]
     Active Substance: THALIDOMIDE
     Indication: PLASMA CELL MYELOMA
     Dosage: 200 MILLIGRAM, QD
     Route: 048
     Dates: start: 20171219, end: 20171219
  14. ADRIACIN [Concomitant]
     Active Substance: DOXORUBICIN HYDROCHLORIDE
     Indication: PLASMA CELL MYELOMA
     Dosage: 13 MILLIGRAM, QD
     Route: 065
     Dates: start: 20171219, end: 20171222
  15. LENADEX [Concomitant]
     Active Substance: DEXAMETHASONE ACETATE
     Indication: PLASMA CELL MYELOMA
     Dosage: 20 MILLIGRAM, QD
     Route: 048
     Dates: start: 20171219, end: 20171219
  16. DEXAMETHASONE. [Concomitant]
     Active Substance: DEXAMETHASONE
     Dosage: 20 MILLIGRAM, QD
     Route: 065
     Dates: start: 20171209, end: 20171210
  17. THALED [Concomitant]
     Active Substance: THALIDOMIDE
     Dosage: 50 MILLIGRAM, QD
     Route: 048
     Dates: start: 20171230, end: 20171230
  18. LASTET [Concomitant]
     Active Substance: ETOPOSIDE
     Indication: PLASMA CELL MYELOMA
     Dosage: 53 MILLIGRAM, QD
     Route: 048
     Dates: start: 20171219, end: 20171222
  19. BORTEZOMIB. [Suspect]
     Active Substance: BORTEZOMIB
     Indication: PLASMA CELL MYELOMA
     Dosage: 1.3 MILLIGRAM/SQ. METER, QD
     Route: 065
     Dates: start: 20171129, end: 20171129
  20. BORTEZOMIB. [Suspect]
     Active Substance: BORTEZOMIB
     Dosage: 1.3 MILLIGRAM/SQ. METER, QD
     Route: 065
     Dates: start: 20171219, end: 20171219
  21. BORTEZOMIB. [Suspect]
     Active Substance: BORTEZOMIB
     Dosage: 1.3 MILLIGRAM/SQ. METER, QD
     Route: 065
     Dates: start: 20171226, end: 20171226
  22. SOLU?CORTEF [Concomitant]
     Active Substance: HYDROCORTISONE SODIUM SUCCINATE
     Indication: DYSPNOEA
     Dosage: 100 MILLIGRAM, QD
     Route: 065
     Dates: start: 20171129, end: 20171129
  23. LENADEX [Concomitant]
     Active Substance: DEXAMETHASONE ACETATE
     Dosage: 20 MILLIGRAM, QD
     Route: 048
     Dates: start: 20180109, end: 20180109
  24. DARZALEX [Suspect]
     Active Substance: DARATUMUMAB
     Dosage: 16 MILLIGRAM/KILOGRAM, QD
     Route: 041
     Dates: start: 20171206

REACTIONS (6)
  - Infusion related reaction [Recovering/Resolving]
  - Nasal congestion [Recovering/Resolving]
  - Plasma cell myeloma [Fatal]
  - Dyspnoea [Recovering/Resolving]
  - Platelet count decreased [Not Recovered/Not Resolved]
  - Rhinorrhoea [Recovering/Resolving]

NARRATIVE: CASE EVENT DATE: 20171129
